FAERS Safety Report 7048760-8 (Version None)
Quarter: 2010Q4

REPORT INFORMATION
  Report Type: 
  Country: None (occurrence: None)
  Receive Date: 20101018
  Receipt Date: 20101011
  Transmission Date: 20110411
  Serious: No
  Sender: FDA-Public Use
  Company Number: US-BIOGENIDEC-2010BI035244

PATIENT
  Sex: Male

DRUGS (1)
  1. AVONEX [Suspect]
     Indication: MULTIPLE SCLEROSIS
     Route: 030
     Dates: start: 20041228

REACTIONS (5)
  - DRUG EFFECT DECREASED [None]
  - GAIT DISTURBANCE [None]
  - INJECTION SITE EXTRAVASATION [None]
  - LOSS OF CONTROL OF LEGS [None]
  - MUSCULAR WEAKNESS [None]
